FAERS Safety Report 4868436-2 (Version None)
Quarter: 2005Q4

REPORT INFORMATION
  Report Type: 
  Country: None (occurrence: None)
  Receive Date: 20051229
  Receipt Date: 20051221
  Transmission Date: 20060501
  Serious: Yes (Hospitalization)
  Sender: FDA-Public Use
  Company Number: GB-AVENTIS-200521281GDDC

PATIENT
  Age: 80 Year
  Sex: Male
  Weight: 98 kg

DRUGS (4)
  1. GLIMEPIRIDE [Suspect]
     Indication: DIABETES MELLITUS NON-INSULIN-DEPENDENT
     Dosage: DOSE: 1 MG TO 2 MG TO 1 MG
     Route: 048
     Dates: start: 20050810, end: 20051214
  2. LATANOPROST [Concomitant]
     Dosage: DOSE: 1 DROP INTO RIGHT EYE
     Route: 047
     Dates: start: 20031118
  3. SIMVASTATIN [Concomitant]
     Dosage: DOSE: ONE TO BE TAKEN AT NIGHT
     Dates: start: 20040428
  4. INFLUENZA VIRUS VACCINE [Concomitant]
     Dates: end: 20051027

REACTIONS (1)
  - RENAL IMPAIRMENT [None]
